FAERS Safety Report 9754467 (Version 5)
Quarter: 2014Q1

REPORT INFORMATION
  Report Type: Spontaneous
  Country: US (occurrence: US)
  Receive Date: 20131213
  Receipt Date: 20140128
  Transmission Date: 20141002
  Serious: Yes (Other)
  Sender: FDA-Public Use
  Company Number: US-GILEAD-2013-0084696

PATIENT
  Age: 74 Year
  Sex: Female
  Weight: 159 kg

DRUGS (4)
  1. LETAIRIS [Suspect]
     Indication: PULMONARY ARTERIAL HYPERTENSION
     Dosage: 5 MG, QD
     Route: 065
     Dates: start: 20130908
  2. LETAIRIS [Suspect]
     Dosage: 5 MG, UNK
     Route: 048
     Dates: start: 20130927, end: 201312
  3. REVATIO [Suspect]
     Indication: PULMONARY ARTERIAL HYPERTENSION
     Dosage: 20 MG, TID
     Route: 065
  4. COUMADIN                           /00014802/ [Concomitant]
     Dosage: 2 MG, QD
     Route: 065

REACTIONS (12)
  - Pulmonary oedema [Unknown]
  - Headache [Unknown]
  - Feeling abnormal [Unknown]
  - Adjustment disorder [Unknown]
  - Depressed mood [Unknown]
  - Oxygen saturation decreased [Unknown]
  - Eye pruritus [Unknown]
  - Dyspnoea exertional [Unknown]
  - Dyspnoea [Not Recovered/Not Resolved]
  - Drug ineffective [Unknown]
  - Fatigue [Unknown]
  - Fatigue [Unknown]
